FAERS Safety Report 15962881 (Version 2)
Quarter: 2019Q1

REPORT INFORMATION
  Report Type: Spontaneous
  Country: FR (occurrence: FR)
  Receive Date: 20190214
  Receipt Date: 20190220
  Transmission Date: 20190417
  Serious: Yes (Death, Other)
  Sender: FDA-Public Use
  Company Number: FR-BAUSCH-BL-2019-004267

PATIENT
  Age: 63 Year
  Sex: Female

DRUGS (19)
  1. TOBRAMYCIN. [Suspect]
     Active Substance: TOBRAMYCIN
     Indication: EVIDENCE BASED TREATMENT
  2. OFLOXACIN. [Suspect]
     Active Substance: OFLOXACIN
     Indication: URINARY TRACT INFECTION
     Route: 065
     Dates: start: 20020521
  3. PIPERACILLIN AND TAZOBACTAM [Suspect]
     Active Substance: PIPERACILLIN SODIUM\TAZOBACTAM SODIUM
     Indication: PYREXIA
     Dosage: UNK
     Route: 065
     Dates: start: 200206
  4. ARA-C [Concomitant]
     Active Substance: CYTARABINE
     Indication: ACUTE MYELOMONOCYTIC LEUKAEMIA
     Dosage: UNK (INTENSIVE CHEMOTHERAPY)
     Dates: start: 20020411
  5. PIPERACILLIN AND TAZOBACTAM [Suspect]
     Active Substance: PIPERACILLIN SODIUM\TAZOBACTAM SODIUM
     Indication: HAEMATOMA
     Dosage: UNK
     Route: 065
     Dates: start: 20020411
  6. VANCOMYCIN [Suspect]
     Active Substance: VANCOMYCIN
     Indication: HAEMATOMA
     Dosage: UNK
     Route: 065
     Dates: start: 20020411
  7. ETOPOSIDE. [Concomitant]
     Active Substance: ETOPOSIDE
     Dosage: UNK (INTENSIVE CHEMOTHERAPY)
     Dates: start: 20020411
  8. ARA-C [Concomitant]
     Active Substance: CYTARABINE
     Dosage: UNK (CONSOLIDATION CHEMOTHERAPY)
     Dates: start: 20020521
  9. IDARUBICIN [Concomitant]
     Active Substance: IDARUBICIN
     Indication: ACUTE MYELOMONOCYTIC LEUKAEMIA
     Dosage: UNK
     Dates: start: 20020521
  10. VANCOMYCIN [Suspect]
     Active Substance: VANCOMYCIN
     Indication: PNEUMONIA
     Dosage: UNK
     Route: 065
     Dates: start: 20020609
  11. MITOXANTRONE [Concomitant]
     Active Substance: MITOXANTRONE HYDROCHLORIDE
     Indication: ACUTE MYELOMONOCYTIC LEUKAEMIA
     Dosage: UNK (INTENSIVE CHEMOTHERAPY)
     Dates: start: 20020411
  12. TOBRAMYCIN. [Suspect]
     Active Substance: TOBRAMYCIN
     Indication: HAEMATOMA
     Route: 065
     Dates: start: 20020411
  13. PIPERACILLIN AND TAZOBACTAM [Suspect]
     Active Substance: PIPERACILLIN SODIUM\TAZOBACTAM SODIUM
     Indication: PANCYTOPENIA
  14. TOBRAMYCIN. [Suspect]
     Active Substance: TOBRAMYCIN
     Indication: PYREXIA
  15. VANCOMYCIN [Suspect]
     Active Substance: VANCOMYCIN
     Indication: PYREXIA
     Route: 065
  16. MITOXANTRONE [Concomitant]
     Active Substance: MITOXANTRONE HYDROCHLORIDE
     Dosage: UNK (CONSOLIDATION CHEMOTHERAPY)
     Dates: start: 20020521
  17. ETOPOSIDE. [Concomitant]
     Active Substance: ETOPOSIDE
     Indication: ACUTE MYELOMONOCYTIC LEUKAEMIA
     Dosage: UNK (CONSOLIDATION CHEMOTHERAPY)
     Dates: start: 20020521
  18. TOBRAMYCIN. [Suspect]
     Active Substance: TOBRAMYCIN
     Indication: PANCYTOPENIA
     Dosage: UNK
     Route: 065
     Dates: start: 200206
  19. PIPERACILLIN AND TAZOBACTAM [Suspect]
     Active Substance: PIPERACILLIN SODIUM\TAZOBACTAM SODIUM
     Indication: EVIDENCE BASED TREATMENT

REACTIONS (1)
  - Stenotrophomonas infection [Unknown]
